FAERS Safety Report 8421614-8 (Version None)
Quarter: 2012Q2

REPORT INFORMATION
  Report Type: 
  Country: None (occurrence: None)
  Receive Date: 20120608
  Receipt Date: 20120604
  Transmission Date: 20120825
  Serious: Yes (Other)
  Sender: FDA-Public Use
  Company Number: BR-PFIZER INC-2012052064

PATIENT
  Age: 43 Year
  Sex: Male
  Weight: 90 kg

DRUGS (3)
  1. PRISTIQ [Suspect]
     Indication: DEPRESSION
     Dosage: 50 MG, 1X/DAY
     Route: 048
     Dates: start: 20120223, end: 20120602
  2. CLONAZEPAM [Concomitant]
     Indication: ANXIETY
     Dosage: 0.25 MG, 1X/DAY
  3. PRISTIQ [Suspect]
     Indication: ANXIETY

REACTIONS (4)
  - INTRAOCULAR PRESSURE INCREASED [None]
  - VISUAL IMPAIRMENT [None]
  - ANXIETY [None]
  - DYSURIA [None]
